FAERS Safety Report 10279999 (Version 5)
Quarter: 2015Q1

REPORT INFORMATION
  Report Type: Spontaneous
  Country: JP (occurrence: JP)
  Receive Date: 20140707
  Receipt Date: 20150224
  Transmission Date: 20150720
  Serious: Yes (Death)
  Sender: FDA-Public Use
  Company Number: JP-JNJFOC-20140703187

PATIENT
  Age: 35 Year
  Sex: Female

DRUGS (24)
  1. SEROQUEL [Suspect]
     Active Substance: QUETIAPINE FUMARATE
     Indication: RESTLESSNESS
     Route: 048
     Dates: start: 20130612, end: 20130807
  2. CERCINE [Suspect]
     Active Substance: DIAZEPAM
     Indication: INSOMNIA
     Route: 048
     Dates: start: 20010725
  3. PYRETHIA [Concomitant]
     Active Substance: PROMETHAZINE HYDROCHLORIDE
     Indication: PARKINSONISM
     Route: 048
     Dates: start: 20020617, end: 20140216
  4. ZANTAC [Concomitant]
     Active Substance: RANITIDINE HYDROCHLORIDE
     Indication: GASTRITIS
     Route: 048
     Dates: end: 20140216
  5. LEVOTOMIN [Suspect]
     Active Substance: LEVOMEPROMAZINE
     Indication: INSOMNIA
     Route: 048
     Dates: start: 20020812
  6. DIAMOX SEQUELS [Suspect]
     Active Substance: ACETAZOLAMIDE
     Indication: MOOD SWINGS
     Route: 048
     Dates: start: 20001018
  7. INVEGA [Suspect]
     Active Substance: PALIPERIDONE
     Indication: SCHIZOPHRENIA
     Route: 048
     Dates: start: 20131106, end: 20140216
  8. SEROQUEL [Suspect]
     Active Substance: QUETIAPINE FUMARATE
     Indication: INSOMNIA
     Route: 048
     Dates: start: 20130807
  9. SEROQUEL [Suspect]
     Active Substance: QUETIAPINE FUMARATE
     Indication: RESTLESSNESS
     Route: 048
     Dates: start: 20130807
  10. LEXOTAN [Suspect]
     Active Substance: BROMAZEPAM
     Indication: ANXIETY
     Dosage: PRN
     Route: 048
     Dates: start: 20120227
  11. SALAZOPYRIN [Concomitant]
     Active Substance: SULFASALAZINE
     Indication: COLITIS ULCERATIVE
     Route: 048
     Dates: start: 19940720, end: 20140216
  12. LEVOTOMIN [Suspect]
     Active Substance: LEVOMEPROMAZINE
     Indication: RESTLESSNESS
     Route: 048
     Dates: end: 20130612
  13. SEROQUEL [Suspect]
     Active Substance: QUETIAPINE FUMARATE
     Indication: RESTLESSNESS
     Route: 048
     Dates: start: 20130220, end: 20130611
  14. LEVOTOMIN [Suspect]
     Active Substance: LEVOMEPROMAZINE
     Indication: INSOMNIA
     Route: 048
     Dates: start: 20140210
  15. LEVOTOMIN [Suspect]
     Active Substance: LEVOMEPROMAZINE
     Indication: INSOMNIA
     Route: 048
     Dates: end: 20130612
  16. LEVOTOMIN [Suspect]
     Active Substance: LEVOMEPROMAZINE
     Indication: RESTLESSNESS
     Route: 048
     Dates: start: 20140210
  17. SEROQUEL [Suspect]
     Active Substance: QUETIAPINE FUMARATE
     Indication: INSOMNIA
     Route: 048
     Dates: start: 20130612, end: 20130807
  18. MUCOSTA [Concomitant]
     Active Substance: REBAMIPIDE
     Indication: GASTRITIS
     Route: 048
     Dates: end: 20140216
  19. LEVOTOMIN [Suspect]
     Active Substance: LEVOMEPROMAZINE
     Indication: RESTLESSNESS
     Route: 048
     Dates: start: 20020812
  20. SEROQUEL [Suspect]
     Active Substance: QUETIAPINE FUMARATE
     Indication: INSOMNIA
     Route: 048
     Dates: start: 20130220, end: 20130611
  21. ALESION [Concomitant]
     Active Substance: EPINASTINE HYDROCHLORIDE
     Indication: RHINITIS ALLERGIC
     Dosage: AFTER DINNER
     Route: 048
     Dates: start: 20131211, end: 20140216
  22. BUP-4 [Concomitant]
     Active Substance: PROPIVERINE
     Indication: POLLAKIURIA
     Route: 048
     Dates: end: 20140216
  23. INVEGA [Suspect]
     Active Substance: PALIPERIDONE
     Indication: SCHIZOPHRENIA
     Route: 048
     Dates: start: 20130612, end: 20131105
  24. DEPAKENE [Suspect]
     Active Substance: VALPROIC ACID
     Indication: RESTLESSNESS
     Route: 048
     Dates: start: 20120702

REACTIONS (5)
  - Cardiac failure [Fatal]
  - Toxicity to various agents [Fatal]
  - Sedation [Unknown]
  - Persecutory delusion [Unknown]
  - Parkinsonism [Recovering/Resolving]

NARRATIVE: CASE EVENT DATE: 20140216
